FAERS Safety Report 4882231-X (Version None)
Quarter: 2006Q1

REPORT INFORMATION
  Report Type: 
  Country: None (occurrence: None)
  Receive Date: 20060113
  Receipt Date: 20060113
  Transmission Date: 20060701
  Serious: Yes (Hospitalization)
  Sender: FDA-Public Use
  Company Number: None

PATIENT
  Age: 79 Year
  Sex: Female
  Weight: 55.3388 kg

DRUGS (1)
  1. TOPOTECAN [Suspect]
     Indication: SMALL CELL LUNG CANCER STAGE UNSPECIFIED
     Dosage: 1.5 MG/M2 X 5 DAYS IV X 4 CYCLES
     Route: 042
     Dates: start: 20051031

REACTIONS (6)
  - ANAEMIA [None]
  - CHILLS [None]
  - DYSPNOEA [None]
  - FATIGUE [None]
  - LUNG INFILTRATION [None]
  - RADIATION PNEUMONITIS [None]
